FAERS Safety Report 23831628 (Version 1)
Quarter: 2024Q2

REPORT INFORMATION
  Report Type: Spontaneous
  Country: US (occurrence: None)
  Receive Date: 20240507
  Receipt Date: 20240507
  Transmission Date: 20240716
  Serious: Yes (Hospitalization)
  Sender: FDA-Public Use
  Company Number: None

PATIENT
  Age: 63 Year
  Sex: Male
  Weight: 44.0 kg

DRUGS (2)
  1. GLIPIZIDE [Suspect]
     Active Substance: GLIPIZIDE
     Indication: Diabetes mellitus
     Dosage: FREQUENCY : DAILY;?
     Route: 048
     Dates: start: 20120125
  2. LEVEMIR [Suspect]
     Active Substance: INSULIN DETEMIR
     Dosage: OTHER QUANTITY : 28 UNITS;?OTHER FREQUENCY : AM;?
     Route: 058
     Dates: start: 20190417

REACTIONS (2)
  - Hypoglycaemia [None]
  - Loss of consciousness [None]

NARRATIVE: CASE EVENT DATE: 20221109
